FAERS Safety Report 21911092 (Version 1)
Quarter: 2023Q1

REPORT INFORMATION
  Report Type: Spontaneous
  Country: US (occurrence: US)
  Receive Date: 20230125
  Receipt Date: 20230125
  Transmission Date: 20230418
  Serious: No
  Sender: FDA-Public Use
  Company Number: US-MYLANLABS-2022M1146723

PATIENT
  Sex: Female
  Weight: 61.69 kg

DRUGS (8)
  1. LATANOPROST [Suspect]
     Active Substance: LATANOPROST
     Indication: Glaucoma
     Dosage: 0.005 PERCENT, HS
     Route: 047
  2. TIMOLOL MALEATE [Suspect]
     Active Substance: TIMOLOL MALEATE
     Indication: Product used for unknown indication
     Dosage: UNK
     Route: 047
  3. COSOPT [Suspect]
     Active Substance: DORZOLAMIDE HYDROCHLORIDE\TIMOLOL MALEATE
     Indication: Glaucoma
     Dosage: UNK
     Route: 065
  4. TRAVATAN [Suspect]
     Active Substance: TRAVOPROST
     Indication: Product used for unknown indication
     Dosage: UNK
     Route: 065
  5. LUMIGAN [Suspect]
     Active Substance: BIMATOPROST
     Indication: Product used for unknown indication
     Dosage: UNK
     Route: 065
  6. ALPHAGAN P [Suspect]
     Active Substance: BRIMONIDINE TARTRATE
     Indication: Product used for unknown indication
     Dosage: UNK
     Route: 065
  7. TIMOPTIC [Concomitant]
     Active Substance: TIMOLOL MALEATE
     Indication: Glaucoma
     Dosage: UNK (.5% ONE DROP IN BOTH EYES A.M. AND P.M)
     Route: 065
  8. ROCKLATAN [Concomitant]
     Active Substance: LATANOPROST\NETARSUDIL MESYLATE
     Indication: Glaucoma
     Dosage: UNK (.5MG ONE DROP IN THE RIGHT EYE IN THE P.M.)
     Route: 065

REACTIONS (1)
  - Drug hypersensitivity [Unknown]
